FAERS Safety Report 25116371 (Version 1)
Quarter: 2025Q1

REPORT INFORMATION
  Report Type: Spontaneous
  Country: ES (occurrence: ES)
  Receive Date: 20250325
  Receipt Date: 20250325
  Transmission Date: 20250408
  Serious: Yes (Other)
  Sender: AUROBINDO
  Company Number: ES-AEMPS-1646532

PATIENT
  Age: 19 Year
  Sex: Male

DRUGS (1)
  1. RISPERIDONE [Suspect]
     Active Substance: RISPERIDONE
     Indication: Tourette^s disorder
     Route: 048
     Dates: start: 20250121

REACTIONS (1)
  - Oromandibular dystonia [Recovered/Resolved]

NARRATIVE: CASE EVENT DATE: 20250203
